FAERS Safety Report 15312972 (Version 2)
Quarter: 2024Q1

REPORT INFORMATION
  Report Type: Spontaneous
  Country: PT (occurrence: PT)
  Receive Date: 20180823
  Receipt Date: 20240329
  Transmission Date: 20240410
  Serious: Yes (Hospitalization, Other)
  Sender: FDA-Public Use
  Company Number: PT-FERRINGPH-2018FE04424

PATIENT
  Age: 23 Year
  Sex: Male

DRUGS (3)
  1. MESALAMINE [Suspect]
     Active Substance: MESALAMINE
     Indication: Colitis
     Dosage: UNK
     Route: 065
     Dates: start: 2009
  2. MESALAMINE [Suspect]
     Active Substance: MESALAMINE
     Indication: Colitis ulcerative
  3. URSODIOL [Concomitant]
     Active Substance: URSODIOL
     Indication: Cholangitis sclerosing
     Dosage: UNK
     Route: 065

REACTIONS (3)
  - Eosinophilia [Recovered/Resolved]
  - Drug hypersensitivity [Recovered/Resolved]
  - Eosinophilic colitis [Recovered/Resolved]
